FAERS Safety Report 12304860 (Version 1)
Quarter: 2016Q2

REPORT INFORMATION
  Report Type: Spontaneous
  Country: US (occurrence: None)
  Receive Date: 20160425
  Receipt Date: 20160425
  Transmission Date: 20160815
  Serious: No
  Sender: FDA-Public Use
  Company Number: None

PATIENT
  Age: 66 Year
  Sex: Male

DRUGS (2)
  1. CEFAZOLIN 10GM POWDER VIAL SAGENT PHARMACEUTICAL [Suspect]
     Active Substance: CEFAZOLIN SODIUM
     Indication: CELLULITIS
     Dosage: 2GM Q8 HOURS IVP
     Route: 042
     Dates: start: 20160322, end: 20160411
  2. CEFAZOLIN 10GM POWDER VIAL SAGENT PHARMACEUTICAL [Suspect]
     Active Substance: CEFAZOLIN SODIUM
     Indication: BACTERAEMIA
     Dosage: 2GM Q8 HOURS IVP
     Route: 042
     Dates: start: 20160322, end: 20160411

REACTIONS (2)
  - Thrombocytopenia [None]
  - Leukopenia [None]

NARRATIVE: CASE EVENT DATE: 20160411
